FAERS Safety Report 12689603 (Version 1)
Quarter: 2016Q3

REPORT INFORMATION
  Report Type: Spontaneous
  Country: US (occurrence: None)
  Receive Date: 20160825
  Receipt Date: 20160825
  Transmission Date: 20161109
  Serious: Yes (Disabling, Other)
  Sender: FDA-Public Use
  Company Number: None

PATIENT
  Age: 78 Year
  Sex: Male

DRUGS (20)
  1. OFLOXACIN OTIC [Suspect]
     Active Substance: OFLOXACIN
     Indication: TYMPANIC MEMBRANE PERFORATION
     Dosage: 4 DROPS 2X/DAY FOR 14 DAYS DROPS IN OPEN EARDRUM
     Dates: start: 20150918, end: 20151002
  2. GUMMY VITS [Concomitant]
  3. KRILL OIL [Concomitant]
     Active Substance: DIETARY SUPPLEMENT
  4. CIPRODEX [Suspect]
     Active Substance: CIPROFLOXACIN HYDROCHLORIDE\DEXAMETHASONE
     Indication: TENDON RUPTURE
     Dosage: 4-5 DROPS INTO EAR X DAY 10 DAYS (QUIT AFTER 1 DAY-STEROID
  5. C [Concomitant]
  6. CIPRODEX [Suspect]
     Active Substance: CIPROFLOXACIN HYDROCHLORIDE\DEXAMETHASONE
     Indication: TINNITUS
     Dosage: 4-5 DROPS INTO EAR X DAY 10 DAYS (QUIT AFTER 1 DAY-STEROID
  7. PROBIOTIC [Concomitant]
     Active Substance: PROBIOTICS NOS
  8. CIPRODEX [Suspect]
     Active Substance: CIPROFLOXACIN HYDROCHLORIDE\DEXAMETHASONE
     Indication: NEUROPATHY PERIPHERAL
     Dosage: 4-5 DROPS INTO EAR X DAY 10 DAYS (QUIT AFTER 1 DAY-STEROID
  9. LIQUID B^S [Concomitant]
  10. VITAMIN E [Concomitant]
     Active Substance: .ALPHA.-TOCOPHEROL
  11. LEVAQUIN [Suspect]
     Active Substance: LEVOFLOXACIN
  12. N-AC [Concomitant]
  13. XCLEAR SINUS SPRAY [Concomitant]
  14. OFLOXACIN OTIC [Suspect]
     Active Substance: OFLOXACIN
     Indication: MYRINGITIS
     Dosage: 4 DROPS 2X/DAY FOR 14 DAYS DROPS IN OPEN EARDRUM
     Dates: start: 20150918, end: 20151002
  15. VITAMIN D3 [Concomitant]
     Active Substance: CHOLECALCIFEROL
  16. OTHER GOOD OILS [Concomitant]
  17. CIPROFLOXACIN. [Suspect]
     Active Substance: CIPROFLOXACIN
  18. MAGNESIUM [Concomitant]
     Active Substance: MAGNESIUM
  19. COQ10 [Concomitant]
     Active Substance: UBIDECARENONE
  20. NAPROXEN SODIUM. [Concomitant]
     Active Substance: NAPROXEN SODIUM

REACTIONS (7)
  - Hypoglycaemia [None]
  - Condition aggravated [None]
  - Tinnitus [None]
  - Tendon rupture [None]
  - Neuropathy peripheral [None]
  - Tendonitis [None]
  - Overdose [None]

NARRATIVE: CASE EVENT DATE: 20150930
